FAERS Safety Report 6963025-8 (Version None)
Quarter: 2010Q3

REPORT INFORMATION
  Report Type: 
  Country: None (occurrence: None)
  Receive Date: 20100902
  Receipt Date: 20100824
  Transmission Date: 20110219
  Serious: Yes (Other)
  Sender: FDA-Public Use
  Company Number: CN-ELI_LILLY_AND_COMPANY-CN201008002905

PATIENT
  Age: 49 Year
  Sex: Male
  Weight: 110 kg

DRUGS (4)
  1. ALIMTA [Suspect]
     Indication: PLEURAL MESOTHELIOMA MALIGNANT
     Dosage: 500 MG/M2, EVERY 21DAYS
     Route: 042
     Dates: end: 20100730
  2. FOLIC ACID [Concomitant]
     Indication: PROPHYLAXIS
  3. VIT B12 [Concomitant]
     Indication: PROPHYLAXIS
  4. DEXAMETHASONE [Concomitant]

REACTIONS (6)
  - COUGH [None]
  - DECREASED APPETITE [None]
  - HAEMOPTYSIS [None]
  - MALIGNANT NEOPLASM PROGRESSION [None]
  - NAUSEA [None]
  - RASH [None]
